FAERS Safety Report 9548856 (Version 1)
Quarter: 2013Q3

REPORT INFORMATION
  Report Type: Spontaneous
  Country: US (occurrence: None)
  Receive Date: 20130711
  Receipt Date: 20130711
  Transmission Date: 20140515
  Serious: Yes (Other)
  Sender: FDA-Public Use
  Company Number: PHEH2013US007251

PATIENT
  Sex: Female

DRUGS (1)
  1. SIGNIFOR [Suspect]

REACTIONS (1)
  - Diabetes mellitus [None]
